FAERS Safety Report 17904275 (Version 1)
Quarter: 2020Q2

REPORT INFORMATION
  Report Type: Report from Study
  Country: US (occurrence: US)
  Receive Date: 20200617
  Receipt Date: 20200617
  Transmission Date: 20200714
  Serious: Yes (Other)
  Sender: FDA-Public Use
  Company Number: US-ROCHE-2619655

PATIENT
  Sex: Female

DRUGS (1)
  1. OCREVUS [Suspect]
     Active Substance: OCRELIZUMAB
     Indication: RELAPSING MULTIPLE SCLEROSIS
     Dosage: GIVE 300 MG THEN REPEAT 300 MG CLOSE IN 2 WEEKS
     Route: 065
     Dates: start: 20180401

REACTIONS (1)
  - Herpes zoster [Not Recovered/Not Resolved]
